FAERS Safety Report 7950207-1 (Version None)
Quarter: 2011Q4

REPORT INFORMATION
  Report Type: 
  Country: None (occurrence: None)
  Receive Date: 20111130
  Receipt Date: 20111121
  Transmission Date: 20120403
  Serious: Yes (Other)
  Sender: FDA-Public Use
  Company Number: DE-B.I. PHARMACEUTICALS,INC./RIDGEFIELD-2011-DE-06495DE

PATIENT
  Sex: Male
  Weight: 69 kg

DRUGS (2)
  1. VIRAMUNE [Suspect]
     Indication: HIV INFECTION
     Dosage: 400 MG
     Route: 048
     Dates: start: 20111010, end: 20111102
  2. TRUVADA [Concomitant]
     Indication: HIV INFECTION
     Dosage: 200/245
     Route: 048
     Dates: start: 20060601

REACTIONS (5)
  - HEPATITIS TOXIC [None]
  - BLOOD BILIRUBIN INCREASED [None]
  - BLOOD ALKALINE PHOSPHATASE INCREASED [None]
  - ASPARTATE AMINOTRANSFERASE INCREASED [None]
  - ALANINE AMINOTRANSFERASE INCREASED [None]
